FAERS Safety Report 19609517 (Version 2)
Quarter: 2021Q3

REPORT INFORMATION
  Report Type: Report from Study
  Country: NL (occurrence: NL)
  Receive Date: 20210726
  Receipt Date: 20210729
  Transmission Date: 20211014
  Serious: Yes (Hospitalization, Other)
  Sender: FDA-Public Use
  Company Number: NL-AMGEN-NLDCT2021112951

PATIENT
  Age: 29 Year
  Sex: Male

DRUGS (7)
  1. PREDNISOLONE. [Suspect]
     Active Substance: PREDNISOLONE
     Indication: B PRECURSOR TYPE ACUTE LEUKAEMIA
     Dosage: 60 MILLIGRAM
     Route: 048
     Dates: start: 20210629, end: 20210705
  2. VINCRISTINE [Suspect]
     Active Substance: VINCRISTINE
     Indication: B PRECURSOR TYPE ACUTE LEUKAEMIA
     Dosage: 2 MILLIGRAM
     Route: 065
     Dates: start: 20210629, end: 20210713
  3. DEXAMETHASONE. [Suspect]
     Active Substance: DEXAMETHASONE
     Indication: B PRECURSOR TYPE ACUTE LEUKAEMIA
     Dosage: 4 MILLIGRAM
     Route: 037
     Dates: start: 20210629, end: 20210629
  4. THIOGUANIN [Suspect]
     Active Substance: THIOGUANINE
     Indication: B PRECURSOR TYPE ACUTE LEUKAEMIA
     Dosage: 100 MILLIGRAM
     Route: 065
     Dates: start: 20210629, end: 20210719
  5. METHOTREXATE. [Suspect]
     Active Substance: METHOTREXATE
     Dosage: 15 MILLIGRAM
     Route: 037
     Dates: start: 20210629, end: 20210629
  6. BLINATUMOMAB [Suspect]
     Active Substance: BLINATUMOMAB
     Indication: B PRECURSOR TYPE ACUTE LEUKAEMIA
     Dosage: 112 MICROGRAM
     Route: 065
     Dates: start: 20201208, end: 20210101
  7. METHOTREXATE. [Suspect]
     Active Substance: METHOTREXATE
     Indication: B PRECURSOR TYPE ACUTE LEUKAEMIA
     Dosage: 7250 MILLIGRAM
     Route: 042
     Dates: start: 20210629, end: 20210713

REACTIONS (1)
  - Febrile neutropenia [Not Recovered/Not Resolved]

NARRATIVE: CASE EVENT DATE: 20210719
